FAERS Safety Report 24594094 (Version 1)
Quarter: 2024Q4

REPORT INFORMATION
  Report Type: Spontaneous
  Country: US (occurrence: US)
  Receive Date: 20241108
  Receipt Date: 20241108
  Transmission Date: 20250114
  Serious: Yes (Other)
  Sender: NOVARTIS
  Company Number: US-002147023-NVSC2024US212669

PATIENT
  Sex: Female

DRUGS (1)
  1. FABHALTA [Suspect]
     Active Substance: IPTACOPAN HYDROCHLORIDE
     Indication: IgA nephropathy
     Dosage: UNK (THREE WEEKS AGO)
     Route: 065

REACTIONS (4)
  - IgA nephropathy [Unknown]
  - Condition aggravated [Unknown]
  - Vasculitis [Unknown]
  - Leukocytosis [Unknown]
